FAERS Safety Report 7399952-X (Version None)
Quarter: 2011Q2

REPORT INFORMATION
  Report Type: 
  Country: None (occurrence: None)
  Receive Date: 20110407
  Receipt Date: 20110330
  Transmission Date: 20111010
  Serious: Yes (Other)
  Sender: FDA-Public Use
  Company Number: ES-TEVA-269067ISR

PATIENT
  Age: 73 Year
  Sex: Female

DRUGS (5)
  1. LEKOVIT CA (CALCIUM CARBONATE/COLECALCIFEROL) [Concomitant]
     Route: 048
     Dates: start: 20031009
  2. SINEMET [Concomitant]
     Dosage: 25/100 MG
     Route: 048
     Dates: start: 20041022
  3. ALENDRONATE SODIUM [Concomitant]
     Route: 048
     Dates: start: 20071029
  4. AZILECT [Suspect]
     Indication: GAIT DISTURBANCE
     Route: 048
     Dates: start: 20090625
  5. ROPINIROLE HYDROCHLORIDE [Suspect]
     Route: 048
     Dates: start: 20090720

REACTIONS (3)
  - MYALGIA [None]
  - MUSCLE RUPTURE [None]
  - ARTHRALGIA [None]
